FAERS Safety Report 8269780-1 (Version None)
Quarter: 2012Q2

REPORT INFORMATION
  Report Type: 
  Country: None (occurrence: None)
  Receive Date: 20120410
  Receipt Date: 20120330
  Transmission Date: 20120825
  Serious: Yes (Other)
  Sender: FDA-Public Use
  Company Number: NZ-BAYER-2012-030805

PATIENT
  Age: 41 Year
  Sex: Female

DRUGS (3)
  1. GENERAL ANESTHESIA [Concomitant]
     Indication: UTERINE POLYPECTOMY
     Dosage: UNK
     Dates: start: 20120315
  2. MIRENA [Suspect]
     Indication: MENORRHAGIA
     Dosage: 20 MCG/24HR, CONT
     Route: 015
     Dates: start: 20120315
  3. LAMICTAL [Interacting]
     Indication: EPILEPSY
     Dosage: 175 MG, BID

REACTIONS (1)
  - EPILEPSY [None]
